FAERS Safety Report 8396373-8 (Version None)
Quarter: 2012Q1

REPORT INFORMATION
  Report Type: 
  Country: None (occurrence: None)
  Receive Date: 20120323
  Receipt Date: 20110311
  Transmission Date: 20120608
  Serious: Yes (Hospitalization)
  Sender: FDA-Public Use
  Company Number: 163-21880-11031670

PATIENT
  Age: 73 Year
  Sex: Female

DRUGS (4)
  1. ASPIRIN [Concomitant]
  2. REVLIMID [Suspect]
     Indication: LYMPHOPROLIFERATIVE DISORDER
     Dosage: 10 MG, 1 IN 1 D, PO, 10 MG, 1 IN 1 D, PO, 5 MG, DAILY X 21 DAYS, THEN 7 DAYS OFF, PO
     Route: 048
     Dates: start: 20101001
  3. REVLIMID [Suspect]
     Indication: LYMPHOPROLIFERATIVE DISORDER
     Dosage: 10 MG, 1 IN 1 D, PO, 10 MG, 1 IN 1 D, PO, 5 MG, DAILY X 21 DAYS, THEN 7 DAYS OFF, PO
     Route: 048
     Dates: start: 20090322, end: 20100101
  4. REVLIMID [Suspect]
     Indication: LYMPHOPROLIFERATIVE DISORDER
     Dosage: 10 MG, 1 IN 1 D, PO, 10 MG, 1 IN 1 D, PO, 5 MG, DAILY X 21 DAYS, THEN 7 DAYS OFF, PO
     Route: 048
     Dates: start: 20081101

REACTIONS (2)
  - HYPOTENSION [None]
  - HAEMOGLOBIN DECREASED [None]
